FAERS Safety Report 6710190-3 (Version None)
Quarter: 2010Q2

REPORT INFORMATION
  Report Type: 
  Country: None (occurrence: None)
  Receive Date: 20100504
  Receipt Date: 20100427
  Transmission Date: 20101027
  Serious: Yes (Other)
  Sender: FDA-Public Use
  Company Number: BR-BRISTOL-MYERS SQUIBB COMPANY-15086838

PATIENT
  Age: 57 Year
  Sex: Female

DRUGS (1)
  1. APROVEL TABS 300 MG [Suspect]
     Dates: start: 20060101

REACTIONS (1)
  - BREAST CANCER [None]
